FAERS Safety Report 4661065-5 (Version None)
Quarter: 2005Q2

REPORT INFORMATION
  Report Type: 
  Country: None (occurrence: None)
  Receive Date: 20050511
  Receipt Date: 20050427
  Transmission Date: 20051028
  Serious: Yes (Other)
  Sender: FDA-Public Use
  Company Number: FR-2005-006436

PATIENT
  Sex: Male

DRUGS (2)
  1. FLUDARA [Suspect]
     Indication: WALDENSTROM'S MACROGLOBULINAEMIA
     Dosage: ORAL
     Route: 048
     Dates: start: 20050414, end: 20050415
  2. RECORMON (ERYTHROPOIETIN HUMAN) [Suspect]

REACTIONS (3)
  - ANGIONEUROTIC OEDEMA [None]
  - RASH [None]
  - URTICARIA [None]
